FAERS Safety Report 7267701-1 (Version None)
Quarter: 2011Q1

REPORT INFORMATION
  Report Type: 
  Country: None (occurrence: None)
  Receive Date: 20110121
  Receipt Date: 20110110
  Transmission Date: 20110831
  Serious: Yes (Hospitalization)
  Sender: FDA-Public Use
  Company Number: 024219

PATIENT
  Sex: Male
  Weight: 116 kg

DRUGS (2)
  1. KEPPRA [Suspect]
     Indication: CONVULSION
     Dosage: (500 MG BID ORAL)
     Route: 048
     Dates: start: 20081212
  2. METFORMIN [Concomitant]

REACTIONS (4)
  - HYPERCHROMIC ANAEMIA [None]
  - FOLATE DEFICIENCY [None]
  - VITAMIN B12 DEFICIENCY [None]
  - ANAEMIA MACROCYTIC [None]
